FAERS Safety Report 5710262-6 (Version None)
Quarter: 2008Q2

REPORT INFORMATION
  Report Type: 
  Country: None (occurrence: None)
  Receive Date: 20080418
  Receipt Date: 20080414
  Transmission Date: 20081010
  Serious: Yes (Other)
  Sender: FDA-Public Use
  Company Number: IT-BOEHRINGER INGELHEIM GMBH, GERMANY-2008-DE-02254GD

PATIENT
  Sex: Female

DRUGS (3)
  1. MORPHINE [Suspect]
     Indication: CANCER PAIN
     Route: 037
  2. LEVOBUPIVACAINE [Suspect]
     Indication: CANCER PAIN
     Dosage: INITIAL DOSE OF 12.5 MG/D, INCREASED TO 25 MG/D, WITH DOSE MODIFICATIONS DURING TREATMENT
     Route: 037
  3. VANCOMYCIN HCL [Concomitant]
     Route: 037

REACTIONS (1)
  - CATHETER SITE INFECTION [None]
